FAERS Safety Report 8434889-6 (Version None)
Quarter: 2012Q2

REPORT INFORMATION
  Report Type: 
  Country: None (occurrence: None)
  Receive Date: 20120611
  Receipt Date: 20120611
  Transmission Date: 20120825
  Serious: No
  Sender: FDA-Public Use
  Company Number: None

PATIENT
  Age: 56 Year
  Sex: Male
  Weight: 74.2 kg

DRUGS (1)
  1. VANCOMYCIN [Suspect]
     Indication: INFECTION
     Dosage: 1750 MG EVERY DAY IV
     Route: 042
     Dates: start: 20120110, end: 20120126

REACTIONS (4)
  - OEDEMA PERIPHERAL [None]
  - URTICARIA [None]
  - PRURITUS [None]
  - RASH GENERALISED [None]
